FAERS Safety Report 7811757-1 (Version None)
Quarter: 2011Q4

REPORT INFORMATION
  Report Type: 
  Country: None (occurrence: None)
  Receive Date: 20111013
  Receipt Date: 20110929
  Transmission Date: 20120403
  Serious: Yes (Hospitalization, Other)
  Sender: FDA-Public Use
  Company Number: US-ELI_LILLY_AND_COMPANY-US201110000154

PATIENT
  Sex: Female

DRUGS (11)
  1. FORTEO [Suspect]
     Indication: OSTEOPOROSIS
     Dosage: 20 UG, QD
     Dates: start: 20110501, end: 20110601
  2. MULTI-VITAMIN [Concomitant]
     Dosage: UNK, QD
  3. LASIX [Concomitant]
     Dosage: UNK, QD
  4. SPIRIVA [Concomitant]
     Dosage: UNK, QD
  5. PROAIR HFA [Concomitant]
     Dosage: UNK, QD
  6. POTASSIUM [Concomitant]
     Dosage: UNK, QD
  7. VITAMIN B-12 [Concomitant]
     Dosage: UNK, QD
  8. ALBUTEROL [Concomitant]
     Dosage: UNK, QD
  9. SYMBICORT [Concomitant]
     Dosage: UNK, QD
  10. ASCORBIC ACID [Concomitant]
     Dosage: UNK, QD
  11. VITAMIN B COMPLEX CAP [Concomitant]
     Dosage: UNK, QD

REACTIONS (11)
  - OCULAR HYPERAEMIA [None]
  - CHRONIC OBSTRUCTIVE PULMONARY DISEASE [None]
  - THORACIC VERTEBRAL FRACTURE [None]
  - ALOPECIA [None]
  - MUSCLE SPASMS [None]
  - VITAMIN D DEFICIENCY [None]
  - EYE DISORDER [None]
  - CREPITATIONS [None]
  - PAIN [None]
  - SPINAL FRACTURE [None]
  - BACK DISORDER [None]
